FAERS Safety Report 5811639-0 (Version None)
Quarter: 2008Q3

REPORT INFORMATION
  Report Type: 
  Country: None (occurrence: None)
  Receive Date: 20080716
  Receipt Date: 20080703
  Transmission Date: 20090109
  Serious: Yes (Hospitalization)
  Sender: FDA-Public Use
  Company Number: JP-ASTRAZENECA-2008SE03253

PATIENT
  Sex: Female

DRUGS (4)
  1. BLOPRESS [Suspect]
     Indication: RENAL TRANSPLANT
     Route: 048
  2. MEDROL [Concomitant]
     Route: 048
  3. NEORAL [Concomitant]
     Route: 048
  4. AZANIN [Concomitant]
     Route: 048

REACTIONS (2)
  - DRUG EXPOSURE DURING PREGNANCY [None]
  - OLIGOHYDRAMNIOS [None]
